FAERS Safety Report 9977014 (Version 1)
Quarter: 2014Q1

REPORT INFORMATION
  Report Type: Report from Study
  Country: US (occurrence: US)
  Receive Date: 20140306
  Receipt Date: 20140306
  Transmission Date: 20141002
  Serious: No
  Sender: FDA-Public Use
  Company Number: US-ABBVIE-13P-163-1166396-00

PATIENT
  Age: 60 Year
  Sex: Male

DRUGS (11)
  1. HUMIRA [Suspect]
     Indication: CROHN^S DISEASE
     Dates: start: 20121222
  2. HUMIRA [Suspect]
     Dates: start: 20131024
  3. APRISO [Concomitant]
     Indication: CROHN^S DISEASE
  4. PINDOLOL [Concomitant]
     Indication: HEART RATE IRREGULAR
  5. VITAMIN D3 [Concomitant]
     Indication: VITAMIN C DEFICIENCY
     Dosage: 3000 IU DAILY
  6. MULTIVITAMIN [Concomitant]
     Indication: PRODUCT USED FOR UNKNOWN INDICATION
     Dosage: DAILY
  7. NEXIUM [Concomitant]
     Indication: GASTROOESOPHAGEAL REFLUX DISEASE
  8. OXYCODONE [Concomitant]
     Indication: PAIN
     Dosage: 10/325 MG
  9. REGLAN [Concomitant]
     Indication: GASTROOESOPHAGEAL REFLUX DISEASE
     Dosage: 5-10 MG DAILY AS NEEDED
  10. TOPROL [Concomitant]
     Indication: HYPERTENSION
  11. FISH OIL [Concomitant]
     Indication: PRODUCT USED FOR UNKNOWN INDICATION

REACTIONS (12)
  - Injection site urticaria [Not Recovered/Not Resolved]
  - Device malfunction [Unknown]
  - Drug dose omission [Unknown]
  - Injection site pain [Recovered/Resolved]
  - Arthralgia [Unknown]
  - Joint swelling [Unknown]
  - Injection site bruising [Unknown]
  - Injection site pain [Unknown]
  - Psoriasis [Unknown]
  - Injection site swelling [Unknown]
  - Injection site erythema [Unknown]
  - Injection site pain [Unknown]
